FAERS Safety Report 17550566 (Version 1)
Quarter: 2020Q1

REPORT INFORMATION
  Report Type: Spontaneous
  Country: CZ (occurrence: CZ)
  Receive Date: 20200317
  Receipt Date: 20200317
  Transmission Date: 20200409
  Serious: Yes (Other)
  Sender: FDA-Public Use
  Company Number: NVSC2020CZ071790

PATIENT
  Age: 10 Year
  Sex: Female

DRUGS (8)
  1. BUDESONIDE. [Suspect]
     Active Substance: BUDESONIDE
     Indication: PRODUCT USED FOR UNKNOWN INDICATION
     Dosage: 0.4 MG, QD {0.2 MG, 2X/DAY (2-0-2)}
     Route: 055
  2. NEUROMULTIVIT [Concomitant]
     Active Substance: CYANOCOBALAMIN\PYRIDOXINE\THIAMINE
     Indication: PRODUCT USED FOR UNKNOWN INDICATION
     Dosage: 3 DF, QD {3 DF, 1X/DAY}
     Route: 065
  3. LAMOTRIGIN [Concomitant]
     Active Substance: LAMOTRIGINE
     Indication: PRODUCT USED FOR UNKNOWN INDICATION
     Dosage: 50 MG, QD {25 MG, BID}
     Route: 065
  4. ZOTEPINE [Concomitant]
     Active Substance: ZOTEPINE
     Indication: PRODUCT USED FOR UNKNOWN INDICATION
     Dosage: 50 MG, QD {25 MG, BID}
     Route: 065
  5. ZIPRASIDON [Concomitant]
     Active Substance: ZIPRASIDONE HYDROCHLORIDE
     Indication: PRODUCT USED FOR UNKNOWN INDICATION
     Dosage: 40 MG, QD {20 MG, BID}
     Route: 065
  6. ENERBOL [Concomitant]
     Indication: PRODUCT USED FOR UNKNOWN INDICATION
     Dosage: 1 UNK, QD {UNK UNK, 100 (UNKNOWN UNIT) 1X/DAY}
     Route: 065
  7. SERTRALINE HYDROCHLORIDE. [Suspect]
     Active Substance: SERTRALINE HYDROCHLORIDE
     Indication: PRODUCT USED FOR UNKNOWN INDICATION
     Dosage: 100 MG, QD {100 MG, 1X/DAY}
     Route: 065
  8. PYRIDOXINE [Concomitant]
     Active Substance: PYRIDOXINE
     Indication: PRODUCT USED FOR UNKNOWN INDICATION
     Dosage: 3 UNK, QD {UNK UNK, 3X/DAY (1 TID)}
     Route: 065

REACTIONS (16)
  - Sleep disorder [Unknown]
  - Reduced facial expression [Unknown]
  - Emotional disorder [Unknown]
  - Decreased eye contact [Unknown]
  - Negativism [Unknown]
  - Coprolalia [Unknown]
  - Communication disorder [Unknown]
  - Stereotypy [Unknown]
  - Aggression [Unknown]
  - Echolalia [Unknown]
  - Inappropriate affect [Unknown]
  - Affect lability [Unknown]
  - Dyslalia [Unknown]
  - Anger [Unknown]
  - Psychomotor hyperactivity [Unknown]
  - Suicidal behaviour [Unknown]
